FAERS Safety Report 8923742 (Version 2)
Quarter: 2013Q1

REPORT INFORMATION
  Report Type: Report from Study
  Country: US (occurrence: US)
  Receive Date: 20121126
  Receipt Date: 20130118
  Transmission Date: 20140127
  Serious: Yes (Hospitalization)
  Sender: FDA-Public Use
  Company Number: US-JNJFOC-20121110912

PATIENT
  Age: 62 Year
  Sex: Female
  Weight: 61.9 kg

DRUGS (9)
  1. APAP [Suspect]
     Route: 048
  2. APAP [Suspect]
     Indication: PRODUCT USED FOR UNKNOWN INDICATION
     Route: 048
  3. ACETAMINOPHEN/DEXTROMETHORPHAN/DOXYLAMINE [Suspect]
     Indication: PRODUCT USED FOR UNKNOWN INDICATION
     Route: 048
  4. ACETAMINOPHEN/DIPHENHYDRAMINE [Suspect]
     Indication: PRODUCT USED FOR UNKNOWN INDICATION
     Route: 048
  5. ETHANOL [Suspect]
     Indication: PRODUCT USED FOR UNKNOWN INDICATION
     Route: 048
  6. TRAMADOL [Concomitant]
     Route: 065
  7. TRAZODONE [Concomitant]
     Route: 065
  8. LORAZEPAM [Concomitant]
     Route: 065
  9. PRILOSEC [Concomitant]
     Route: 065

REACTIONS (4)
  - Self injurious behaviour [Recovered/Resolved]
  - Overdose [Recovered/Resolved]
  - Aspartate aminotransferase increased [None]
  - Intentional overdose [None]
